FAERS Safety Report 12633143 (Version 1)
Quarter: 2016Q3

REPORT INFORMATION
  Report Type: Spontaneous
  Country: US (occurrence: None)
  Receive Date: 20160808
  Receipt Date: 20160808
  Transmission Date: 20161109
  Serious: Yes (Disabling, Other)
  Sender: FDA-Public Use
  Company Number: None

PATIENT
  Age: 52 Year
  Sex: Male
  Weight: 88.45 kg

DRUGS (6)
  1. ZOLOFT [Suspect]
     Active Substance: SERTRALINE HYDROCHLORIDE
     Indication: BODY DYSMORPHIC DISORDER
     Route: 048
     Dates: start: 20000101, end: 20160806
  2. ZOLOFT [Suspect]
     Active Substance: SERTRALINE HYDROCHLORIDE
     Indication: BIPOLAR DISORDER
     Route: 048
     Dates: start: 20000101, end: 20160806
  3. ZOLOFT [Suspect]
     Active Substance: SERTRALINE HYDROCHLORIDE
     Indication: ANXIETY
     Route: 048
     Dates: start: 20000101, end: 20160806
  4. ZOLOFT [Suspect]
     Active Substance: SERTRALINE HYDROCHLORIDE
     Indication: TRICHOTILLOMANIA
     Route: 048
     Dates: start: 20000101, end: 20160806
  5. LISINOPRIL. [Concomitant]
     Active Substance: LISINOPRIL
  6. ZOLOFT [Suspect]
     Active Substance: SERTRALINE HYDROCHLORIDE
     Indication: OBSESSIVE-COMPULSIVE DISORDER
     Route: 048
     Dates: start: 20000101, end: 20160806

REACTIONS (6)
  - Depression [None]
  - Feeling abnormal [None]
  - Quality of life decreased [None]
  - Gambling disorder [None]
  - Suicidal ideation [None]
  - Impaired work ability [None]

NARRATIVE: CASE EVENT DATE: 20000101
